FAERS Safety Report 9619667 (Version 4)
Quarter: 2013Q4

REPORT INFORMATION
  Report Type: Report from Study
  Country: DE (occurrence: DE)
  Receive Date: 20131014
  Receipt Date: 20131204
  Transmission Date: 20140711
  Serious: Yes (Death, Hospitalization)
  Sender: FDA-Public Use
  Company Number: DE-PFIZER INC-2013290582

PATIENT
  Age: 69 Year
  Sex: Female
  Weight: 97 kg

DRUGS (8)
  1. GEMTUZUMAB OZOGAMICIN [Suspect]
     Indication: ACUTE MYELOID LEUKAEMIA
     Dosage: 6.3 MG, UNK
     Dates: start: 20130918, end: 20130918
  2. IDARUBICIN HCL [Suspect]
     Indication: ACUTE MYELOID LEUKAEMIA
     Dosage: 25.2 MG, DAILY
     Dates: start: 20130916, end: 20130916
  3. IDARUBICIN HCL [Suspect]
     Dosage: 25.2 MG, DAILY
     Dates: start: 20130918, end: 20130918
  4. CYTARABINE [Suspect]
     Indication: ACUTE MYELOID LEUKAEMIA
     Dosage: 210 MG, DAILY
     Dates: start: 20130916, end: 20130922
  5. ETOPOSIDE [Suspect]
     Indication: ACUTE MYELOID LEUKAEMIA
     Dosage: 210 MG, DAILY
     Dates: start: 20130916, end: 20130916
  6. ETOPOSIDE [Suspect]
     Dosage: 210 MG, DAILY
     Dates: start: 20130918, end: 20130918
  7. ATRA [Concomitant]
     Dosage: 90 MG, UNK
     Dates: start: 20130921, end: 20130923
  8. ATRA [Concomitant]
     Dosage: 30 MG, DAILY
     Dates: start: 20130924, end: 20131006

REACTIONS (1)
  - Pneumonia [Fatal]
